FAERS Safety Report 5884969-4 (Version None)
Quarter: 2008Q3

REPORT INFORMATION
  Report Type: 
  Country: None (occurrence: None)
  Receive Date: 20080916
  Receipt Date: 20080910
  Transmission Date: 20090109
  Serious: Yes (Hospitalization)
  Sender: FDA-Public Use
  Company Number: B0536548A

PATIENT
  Age: 66 Year
  Sex: Female

DRUGS (7)
  1. AMOXICILLIN [Suspect]
     Indication: URINARY TRACT INFECTION
     Dosage: 500MG THREE TIMES PER DAY
     Route: 048
     Dates: start: 20080730, end: 20080808
  2. DAPSONE [Suspect]
     Indication: PYODERMA GANGRENOSUM
     Dosage: 100MG PER DAY
     Route: 065
     Dates: start: 20080725, end: 20080814
  3. DAFALGAN [Concomitant]
     Indication: DRUG USE FOR UNKNOWN INDICATION
     Route: 065
  4. DESLORATADINE [Concomitant]
     Indication: DRUG USE FOR UNKNOWN INDICATION
     Route: 065
  5. ELUDRIL [Concomitant]
     Indication: DRUG USE FOR UNKNOWN INDICATION
     Route: 065
  6. CERULYSE [Concomitant]
     Indication: DRUG USE FOR UNKNOWN INDICATION
     Route: 065
  7. ARIXTRA [Concomitant]
     Indication: DRUG USE FOR UNKNOWN INDICATION
     Dosage: 2.5MG PER DAY
     Route: 058

REACTIONS (6)
  - ERYTHEMA [None]
  - FEELING HOT [None]
  - PYREXIA [None]
  - RASH MACULO-PAPULAR [None]
  - RASH MORBILLIFORM [None]
  - SKIN PLAQUE [None]
